FAERS Safety Report 10161721 (Version 1)
Quarter: 2014Q2

REPORT INFORMATION
  Report Type: Spontaneous
  Country: DE (occurrence: DE)
  Receive Date: 20140509
  Receipt Date: 20140509
  Transmission Date: 20141212
  Serious: Yes (Other)
  Sender: FDA-Public Use
  Company Number: DE-RANBAXY-2014RR-80834

PATIENT
  Sex: Female

DRUGS (1)
  1. CEFUROX BASICS 500 MG TABLETTEN [Suspect]
     Indication: PRODUCT USED FOR UNKNOWN INDICATION
     Dosage: 3 TABLETS
     Route: 048
     Dates: start: 20140422, end: 20140423

REACTIONS (3)
  - Rash pustular [Not Recovered/Not Resolved]
  - Swelling face [Not Recovered/Not Resolved]
  - General physical health deterioration [Not Recovered/Not Resolved]
